FAERS Safety Report 14607391 (Version 2)
Quarter: 2018Q1

REPORT INFORMATION
  Report Type: Spontaneous
  Country: US (occurrence: US)
  Receive Date: 20180307
  Receipt Date: 20180321
  Transmission Date: 20180509
  Serious: No
  Sender: FDA-Public Use
  Company Number: US-PFIZER INC-2018093205

PATIENT
  Age: 63 Year
  Sex: Female

DRUGS (2)
  1. CINNAMON. [Suspect]
     Active Substance: CINNAMON
     Dosage: UNK
  2. XANAX [Suspect]
     Active Substance: ALPRAZOLAM
     Dosage: UNK

REACTIONS (1)
  - Drug hypersensitivity [Unknown]
